FAERS Safety Report 13287693 (Version 2)
Quarter: 2017Q1

REPORT INFORMATION
  Report Type: Spontaneous
  Country: JP (occurrence: JP)
  Receive Date: 20170302
  Receipt Date: 20170324
  Transmission Date: 20170428
  Serious: Yes (Death)
  Sender: FDA-Public Use
  Company Number: JP-TEVA-742201ISR

PATIENT
  Age: 60 Year
  Sex: Female
  Weight: 40 kg

DRUGS (27)
  1. FENTANYL. [Concomitant]
     Active Substance: FENTANYL
     Dosage: 21 MILLIGRAM DAILY;
     Route: 062
     Dates: start: 20150330, end: 20150331
  2. MOBIC [Concomitant]
     Active Substance: MELOXICAM
     Indication: CANCER PAIN
     Route: 048
     Dates: start: 20150209, end: 20150301
  3. NEXIUM [Concomitant]
     Active Substance: ESOMEPRAZOLE MAGNESIUM
     Indication: PROPHYLAXIS AGAINST GASTROINTESTINAL ULCER
     Dosage: 20 MILLIGRAM DAILY;
     Route: 048
     Dates: start: 20150220
  4. FENTANYL. [Concomitant]
     Active Substance: FENTANYL
     Dosage: 6.3 MILLIGRAM DAILY;
     Route: 062
     Dates: start: 20150223, end: 20150225
  5. FENTANYL. [Concomitant]
     Active Substance: FENTANYL
     Indication: CANCER PAIN
     Dosage: 2.1 MILLIGRAM DAILY;
     Route: 062
     Dates: start: 20150207, end: 20150219
  6. FENTANYL. [Concomitant]
     Active Substance: FENTANYL
     Dosage: 12.6 MILLIGRAM DAILY;
     Route: 062
     Dates: start: 20150309, end: 20150311
  7. E-FEN BUCCAL [Suspect]
     Active Substance: FENTANYL CITRATE
     Indication: BREAKTHROUGH PAIN
     Dosage: 100 MICROGRAM DAILY;
     Route: 002
     Dates: start: 20150210, end: 20150210
  8. FENTANYL. [Concomitant]
     Active Substance: FENTANYL
     Dosage: 4.2 MILLIGRAM DAILY;
     Route: 062
     Dates: start: 20150220, end: 20150222
  9. FENTANYL. [Concomitant]
     Active Substance: FENTANYL
     Dosage: 10.5 MILLIGRAM DAILY;
     Route: 062
     Dates: start: 20150302, end: 20150308
  10. CALONAL [Concomitant]
     Active Substance: ACETAMINOPHEN
     Indication: CANCER PAIN
     Route: 048
     Dates: start: 20150302
  11. RINDERON V [Concomitant]
     Active Substance: BETAMETHASONE VALERATE
     Indication: DECREASED APPETITE
     Dosage: 2 MILLIGRAM DAILY;
     Route: 048
     Dates: start: 20150219, end: 20150301
  12. RINDERON V [Concomitant]
     Active Substance: BETAMETHASONE VALERATE
     Dosage: 4 MILLIGRAM DAILY;
     Route: 048
     Dates: start: 20150316
  13. MAGMITT [Concomitant]
     Active Substance: MAGNESIUM OXIDE
     Indication: CONSTIPATION
     Dosage: 1000 MILLIGRAM DAILY;
     Route: 048
     Dates: start: 20150302, end: 20150315
  14. E-FEN BUCCAL [Suspect]
     Active Substance: FENTANYL CITRATE
     Dosage: DAILY DOSE: 200-400 MICROGRAMS
     Route: 002
     Dates: start: 20150219, end: 20150222
  15. FENTANYL. [Concomitant]
     Active Substance: FENTANYL
     Dosage: 18.9 MILLIGRAM DAILY;
     Route: 062
     Dates: start: 20150326, end: 20150329
  16. FENTANYL. [Concomitant]
     Active Substance: FENTANYL
     Dosage: 25.2 MILLIGRAM DAILY;
     Route: 062
     Dates: start: 20150401, end: 20150403
  17. FENTANYL. [Concomitant]
     Active Substance: FENTANYL
     Dosage: 33.6 MILLIGRAM DAILY;
     Route: 062
     Dates: start: 20150404
  18. MAGMITT [Concomitant]
     Active Substance: MAGNESIUM OXIDE
     Dosage: 1500 MILLIGRAM DAILY;
     Route: 048
     Dates: start: 20150316
  19. E-FEN BUCCAL [Suspect]
     Active Substance: FENTANYL CITRATE
     Dosage: 200 MICROGRAM DAILY;
     Route: 002
     Dates: start: 20150223, end: 20150404
  20. E-FEN BUCCAL [Suspect]
     Active Substance: FENTANYL CITRATE
     Dosage: 400 MICROGRAM DAILY;
     Route: 002
     Dates: start: 20150223, end: 20150404
  21. RINDERON V [Concomitant]
     Active Substance: BETAMETHASONE VALERATE
     Dosage: 3 MILLIGRAM DAILY;
     Route: 048
     Dates: start: 20150302, end: 20150315
  22. NORVASC [Concomitant]
     Active Substance: AMLODIPINE BESYLATE
     Indication: HYPERTENSION
     Dosage: 1.25 MILLIGRAM DAILY;
     Route: 048
     Dates: start: 20150220
  23. LYRICA [Concomitant]
     Active Substance: PREGABALIN
     Indication: CANCER PAIN
     Route: 048
     Dates: start: 20150209
  24. E-FEN BUCCAL [Suspect]
     Active Substance: FENTANYL CITRATE
     Dosage: DAILY DOSE: 100-300 MICROGRAMS
     Route: 002
     Dates: start: 20150210, end: 20150224
  25. FENTANYL. [Concomitant]
     Active Substance: FENTANYL
     Dosage: 14.7 MILLIGRAM DAILY;
     Route: 062
     Dates: start: 20150312, end: 20150315
  26. FENTANYL. [Concomitant]
     Active Substance: FENTANYL
     Dosage: 16.8 MILLIGRAM DAILY;
     Route: 062
     Dates: start: 20150316, end: 20150325
  27. FENTANYL. [Concomitant]
     Active Substance: FENTANYL
     Dosage: 8.4 MILLIGRAM DAILY;
     Route: 062
     Dates: start: 20150226, end: 20150301

REACTIONS (1)
  - Cholangiocarcinoma [Fatal]

NARRATIVE: CASE EVENT DATE: 20150405
